FAERS Safety Report 19265281 (Version 2)
Quarter: 2021Q2

REPORT INFORMATION
  Report Type: Report from Study
  Country: US (occurrence: US)
  Receive Date: 20210517
  Receipt Date: 20210622
  Transmission Date: 20210717
  Serious: Yes (Other)
  Sender: FDA-Public Use
  Company Number: NVSC2021US103666

PATIENT
  Age: 56 Year
  Sex: Male
  Weight: 52.15 kg

DRUGS (1)
  1. JADENU [Suspect]
     Active Substance: DEFERASIROX
     Indication: HAEMOCHROMATOSIS
     Dosage: 360 MG (2 TABS)
     Route: 048
     Dates: start: 20160121, end: 20200605

REACTIONS (2)
  - Renal failure [Unknown]
  - Renal impairment [Recovered/Resolved with Sequelae]

NARRATIVE: CASE EVENT DATE: 20200605
